FAERS Safety Report 5837022-X (Version None)
Quarter: 2008Q3

REPORT INFORMATION
  Report Type: 
  Country: None (occurrence: None)
  Receive Date: 20080731
  Receipt Date: 20080606
  Transmission Date: 20090109
  Serious: No
  Sender: FDA-Public Use
  Company Number: US200806001893

PATIENT
  Age: 47 Year
  Sex: Female
  Weight: 36.3 kg

DRUGS (3)
  1. BYETTA [Suspect]
     Indication: POST GASTRIC SURGERY SYNDROME
     Dosage: 5 UG, 2/D, SUBCUTANEOUS; 10 UG, 2/D, SUBCUTANEOUS
     Route: 058
     Dates: start: 20080401, end: 20080605
  2. BYETTA [Suspect]
     Indication: POST GASTRIC SURGERY SYNDROME
     Dosage: 5 UG, 2/D, SUBCUTANEOUS; 10 UG, 2/D, SUBCUTANEOUS
     Route: 058
     Dates: start: 20080606
  3. EXENATIDE 5MCG PWN, DISPOSABLE DEVICE [Concomitant]

REACTIONS (2)
  - INCORRECT DOSE ADMINISTERED [None]
  - NAUSEA [None]
